FAERS Safety Report 23149535 (Version 2)
Quarter: 2024Q1

REPORT INFORMATION
  Report Type: Spontaneous
  Country: DE (occurrence: DE)
  Receive Date: 20231106
  Receipt Date: 20240214
  Transmission Date: 20240410
  Serious: Yes (Death, Other)
  Sender: FDA-Public Use
  Company Number: DE-PFM-2020-02751

PATIENT
  Sex: Female

DRUGS (6)
  1. CAPECITABINE [Suspect]
     Active Substance: CAPECITABINE
     Indication: Product used for unknown indication
     Dosage: UNK
     Route: 065
  2. CYCLOPHOSPHAMIDE [Suspect]
     Active Substance: CYCLOPHOSPHAMIDE
     Indication: Product used for unknown indication
     Dosage: 600 MG/M2, UNK
     Route: 065
     Dates: start: 201910
  3. DOXORUBICIN [Suspect]
     Active Substance: DOXORUBICIN
     Indication: Product used for unknown indication
     Dosage: 75 MG/M2, UNK
     Route: 065
  4. DOXORUBICIN [Suspect]
     Active Substance: DOXORUBICIN
     Dosage: 75 MG/M2, UNK
     Route: 065
  5. VINORELBINE [Suspect]
     Active Substance: VINORELBINE TARTRATE
     Indication: Product used for unknown indication
     Dosage: 15 MG/M2
     Route: 065
  6. VINORELBINE [Suspect]
     Active Substance: VINORELBINE TARTRATE
     Dosage: 20 MG/M2, (CYCLIC 3)
     Route: 042
     Dates: start: 201910

REACTIONS (6)
  - General physical health deterioration [Fatal]
  - Thrombocytopenia [Fatal]
  - Abdominal discomfort [Fatal]
  - Drug hypersensitivity [Fatal]
  - Bradycardia [Fatal]
  - Anaemia [Fatal]

NARRATIVE: CASE EVENT DATE: 20191001
